FAERS Safety Report 21508614 (Version 1)
Quarter: 2022Q4

REPORT INFORMATION
  Report Type: Spontaneous
  Country: US (occurrence: US)
  Receive Date: 20221026
  Receipt Date: 20221026
  Transmission Date: 20230112
  Serious: Yes (Other)
  Sender: FDA-Public Use
  Company Number: US-PFIZER INC-202201253452

PATIENT
  Age: 48 Year
  Sex: Female
  Weight: 72.57 kg

DRUGS (5)
  1. PAXLOVID [Interacting]
     Active Substance: NIRMATRELVIR\RITONAVIR
     Indication: COVID-19 treatment
     Dosage: MORNING DOSE, NIGHT DOSE EACH WITH 2 WHITE PILL, 1 PINK PILL
     Dates: start: 20221013, end: 20221018
  2. MUCINEX [Interacting]
     Active Substance: GUAIFENESIN
     Indication: Chest discomfort
     Dosage: 600MG GUAIFENESIN EXTENDED RELEASE BILAYER TABLET
     Dates: start: 20221016, end: 20221019
  3. MUCINEX [Interacting]
     Active Substance: GUAIFENESIN
     Indication: Secretion discharge
  4. MUCINEX [Interacting]
     Active Substance: GUAIFENESIN
     Indication: Cough
  5. METHADONE [Concomitant]
     Active Substance: METHADONE HYDROCHLORIDE
     Dosage: 48 MG, DAILY

REACTIONS (8)
  - Drug interaction [Unknown]
  - Serotonin syndrome [Unknown]
  - Palpitations [Unknown]
  - Hyperhidrosis [Unknown]
  - Chills [Unknown]
  - Restless legs syndrome [Unknown]
  - Fatigue [Unknown]
  - Cold sweat [Unknown]

NARRATIVE: CASE EVENT DATE: 20221001
